FAERS Safety Report 6310114-7 (Version None)
Quarter: 2009Q3

REPORT INFORMATION
  Report Type: 
  Country: None (occurrence: None)
  Receive Date: 20090814
  Receipt Date: 20090803
  Transmission Date: 20100115
  Serious: Yes (Other)
  Sender: FDA-Public Use
  Company Number: US-WATSON-2009-06169

PATIENT
  Sex: Female

DRUGS (6)
  1. FENTANYL-25 [Suspect]
     Indication: FIBROMYALGIA
     Dosage: 1 PATCH, Q 3 DAYS
     Route: 062
     Dates: end: 20090701
  2. FENTANYL-25 [Suspect]
     Dosage: 1 PATCH, Q 3 DAYS
     Route: 062
  3. FENTANYL-100 [Suspect]
     Indication: FIBROMYALGIA
     Dosage: 1 PATCH, Q 3 DAYS
     Route: 062
  4. GABAPENTIN [Suspect]
     Indication: EPILEPSY
     Dosage: 200 MG, TID
     Route: 048
     Dates: start: 20090101, end: 20090101
  5. GABAPENTIN [Suspect]
     Dosage: 300 MG, TID
     Route: 048
     Dates: end: 20090101
  6. GABAPENTIN [Suspect]
     Dosage: UNK

REACTIONS (5)
  - APPLICATION SITE VESICLES [None]
  - ASTHENIA [None]
  - DELUSION [None]
  - LOSS OF CONSCIOUSNESS [None]
  - SOMNOLENCE [None]
